FAERS Safety Report 15500431 (Version 1)
Quarter: 2018Q4

REPORT INFORMATION
  Report Type: Spontaneous
  Country: US (occurrence: US)
  Receive Date: 20181015
  Receipt Date: 20181015
  Transmission Date: 20190205
  Serious: No
  Sender: FDA-Public Use
  Company Number: US-DSJP-DSU-2018-136433

PATIENT
  Age: 51 Year
  Sex: Female
  Weight: 83.9 kg

DRUGS (6)
  1. ANTI INFLAMMATORY [Concomitant]
     Indication: ARTHROPATHY
     Dosage: UNK
     Route: 048
  2. MOVANTIK [Concomitant]
     Active Substance: NALOXEGOL OXALATE
     Indication: CONSTIPATION
     Dosage: UNK
     Route: 048
  3. NEURONTIN [Concomitant]
     Active Substance: GABAPENTIN
     Indication: NEURALGIA
     Dosage: UNK
     Route: 048
  4. MORPHABOND ER [Suspect]
     Active Substance: MORPHINE SULFATE
     Indication: PAIN
     Dosage: 90 MG, BID (ONE TABLET OF 30 MG AND ONE TABLET OF 60 MG)
     Route: 048
     Dates: start: 20180727
  5. LISINOPRIL. [Concomitant]
     Active Substance: LISINOPRIL
     Indication: HYPERTENSION
     Dosage: UNK
     Route: 048
  6. TEMAZEPAM. [Concomitant]
     Active Substance: TEMAZEPAM
     Indication: SLEEP DISORDER
     Dosage: UNK
     Route: 048

REACTIONS (2)
  - Product residue present [Unknown]
  - Constipation [Unknown]

NARRATIVE: CASE EVENT DATE: 201807
